FAERS Safety Report 8392322-7 (Version None)
Quarter: 2012Q2

REPORT INFORMATION
  Report Type: 
  Country: None (occurrence: None)
  Receive Date: 20120529
  Receipt Date: 20120523
  Transmission Date: 20120825
  Serious: Yes (Death)
  Sender: FDA-Public Use
  Company Number: JP-ELI_LILLY_AND_COMPANY-JP201012004899

PATIENT
  Age: 85 Year
  Sex: Female
  Weight: 32 kg

DRUGS (3)
  1. GEMZAR [Suspect]
     Indication: PANCREATIC CARCINOMA
     Dosage: 1000 MG, UNKNOWN
     Route: 042
     Dates: start: 20101122, end: 20101129
  2. MIYA-BM [Concomitant]
     Dosage: 3 D/F, 3/D
     Route: 048
     Dates: start: 20101201
  3. PRIMPERAN TAB [Concomitant]
     Dosage: 10 MG, UNKNOWN
     Route: 065
     Dates: start: 20101201, end: 20101201

REACTIONS (1)
  - GASTROINTESTINAL PERFORATION [None]
